FAERS Safety Report 5726458-3 (Version None)
Quarter: 2008Q2

REPORT INFORMATION
  Report Type: 
  Country: None (occurrence: None)
  Receive Date: 20080502
  Receipt Date: 20080428
  Transmission Date: 20081010
  Serious: Yes (Hospitalization)
  Sender: FDA-Public Use
  Company Number: B0518595A

PATIENT
  Age: 6 Year
  Sex: Female

DRUGS (1)
  1. ZENTEL [Suspect]
     Dosage: 2TAB SINGLE DOSE
     Route: 048
     Dates: start: 20080422, end: 20080422

REACTIONS (2)
  - NAUSEA [None]
  - VOMITING [None]
